FAERS Safety Report 8779172 (Version 2)
Quarter: 2012Q4

REPORT INFORMATION
  Report Type: 
  Country: US (occurrence: US)
  Receive Date: 20120911
  Receipt Date: 20120911
  Transmission Date: 20130627
  Serious: Yes (Hospitalization)
  Sender: FDA-Public Use
  Company Number: US-ALLERGAN-1207128US

PATIENT
  Age: 59 Year
  Sex: Female

DRUGS (8)
  1. BOTOX [Suspect]
     Indication: NEUROGENIC BLADDER
     Dosage: UNK
     Route: 043
     Dates: start: 20111122, end: 20111122
  2. NEXIUM                             /01479302/ [Concomitant]
     Indication: GERD
     Dosage: 40 mg, UNK
     Route: 048
  3. LEVOTHYROXINE [Concomitant]
     Indication: THYROIDECTOMY
     Dosage: 0.112 mg, qd
     Route: 048
  4. TOVIAZ [Concomitant]
     Indication: DRUG USE FOR UNKNOWN INDICATION
     Dosage: 4 mg, UNK
     Route: 048
  5. CYMBALTA [Concomitant]
     Indication: DRUG USE FOR UNKNOWN INDICATION
     Dosage: 60 mg, UNK
     Route: 048
  6. GLUCOSAMINE [Concomitant]
     Indication: DRUG USE FOR UNKNOWN INDICATION
     Dosage: UNK
     Route: 048
  7. VIT D [Concomitant]
     Indication: DRUG USE FOR UNKNOWN INDICATION
  8. AMPYRA ER [Concomitant]
     Indication: DRUG USE FOR UNKNOWN INDICATION
     Dosage: 10 mg, bid
     Route: 048

REACTIONS (6)
  - Hyponatraemia [Recovered/Resolved]
  - Confusional state [Recovered/Resolved]
  - Pyrexia [Recovered/Resolved]
  - Fatigue [Recovered/Resolved]
  - Asthenia [Recovered/Resolved]
  - Influenza like illness [Unknown]
